FAERS Safety Report 8335675-8 (Version None)
Quarter: 2012Q2

REPORT INFORMATION
  Report Type: 
  Country: None (occurrence: None)
  Receive Date: 20120504
  Receipt Date: 20120424
  Transmission Date: 20120825
  Serious: No
  Sender: FDA-Public Use
  Company Number: US-BIOGENIDEC-2012BI014286

PATIENT
  Age: 44 Year
  Sex: Female

DRUGS (1)
  1. TYSABRI [Suspect]
     Indication: MULTIPLE SCLEROSIS
     Route: 042
     Dates: start: 20091201

REACTIONS (6)
  - FEELING HOT [None]
  - ARTHRALGIA [None]
  - FATIGUE [None]
  - NERVOUSNESS [None]
  - VISUAL IMPAIRMENT [None]
  - MEMORY IMPAIRMENT [None]
